FAERS Safety Report 6972722-X (Version None)
Quarter: 2010Q3

REPORT INFORMATION
  Report Type: 
  Country: None (occurrence: None)
  Receive Date: 20100909
  Receipt Date: 20100831
  Transmission Date: 20110219
  Serious: Yes (Other)
  Sender: FDA-Public Use
  Company Number: JP-PFIZER INC-2010106162

PATIENT
  Age: 12 Year
  Sex: Female

DRUGS (2)
  1. GENOTROPIN [Suspect]
     Indication: BODY HEIGHT BELOW NORMAL
     Dosage: 4.8 MG, WEEKLY, 6 TIMES IN A WEEK
     Route: 058
     Dates: start: 20080513
  2. GENOTROPIN [Suspect]
     Dosage: 6 MG, WEEKLY, 6 TIMES IN A WEEK
     Dates: start: 20100806

REACTIONS (1)
  - BRAIN NEOPLASM [None]
